FAERS Safety Report 9247570 (Version 1)
Quarter: 2013Q2

REPORT INFORMATION
  Report Type: Report from Study
  Country: US (occurrence: US)
  Receive Date: 20130423
  Receipt Date: 20130423
  Transmission Date: 20140414
  Serious: Yes (Hospitalization)
  Sender: FDA-Public Use
  Company Number: PHEH2013US008779

PATIENT
  Age: 23 Year
  Sex: Female

DRUGS (7)
  1. AFINITOR [Suspect]
     Dosage: 5 MG, DAILY
     Route: 048
  2. TRILEPTAL [Concomitant]
  3. CLONAZEPAM [Concomitant]
  4. SENOKOT [Concomitant]
  5. MIRALAX [Concomitant]
  6. RISPERIDONE [Concomitant]
  7. LOESTRIN [Concomitant]

REACTIONS (5)
  - Seizure cluster [Recovering/Resolving]
  - Retching [Unknown]
  - Nausea [Unknown]
  - Constipation [Unknown]
  - Vomiting [Unknown]
